FAERS Safety Report 6372074-2 (Version None)
Quarter: 2009Q3

REPORT INFORMATION
  Report Type: 
  Country: None (occurrence: None)
  Receive Date: 20090917
  Receipt Date: 20090904
  Transmission Date: 20100115
  Serious: Yes (Other)
  Sender: FDA-Public Use
  Company Number: ADR16022009

PATIENT
  Age: 73 Year
  Sex: Male

DRUGS (6)
  1. CITALOPRAM HYDROBROMIDE [Suspect]
  2. MIRTAZAPINE [Suspect]
  3. BISOPROLOL FUMARATE [Concomitant]
  4. RAMIPRIL [Concomitant]
  5. SIMVASTATIN [Concomitant]
  6. TAMSULOSIN HCL [Concomitant]

REACTIONS (1)
  - BLOOD PRESSURE INCREASED [None]
